FAERS Safety Report 10067574 (Version 1)
Quarter: 2014Q2

REPORT INFORMATION
  Report Type: Spontaneous
  Country: US (occurrence: None)
  Receive Date: 20140408
  Receipt Date: 20140408
  Transmission Date: 20141212
  Serious: Yes (Hospitalization)
  Sender: FDA-Public Use
  Company Number: None

PATIENT
  Age: 67 Year
  Sex: Male

DRUGS (1)
  1. BACLOFEN [Suspect]
     Indication: PAIN
     Dosage: 10 MG AT BEDTIME PO
     Route: 048
     Dates: start: 20131212, end: 20131227

REACTIONS (4)
  - Tremor [None]
  - Muscle twitching [None]
  - Fall [None]
  - Dialysis [None]
